FAERS Safety Report 5788422-8 (Version None)
Quarter: 2008Q2

REPORT INFORMATION
  Report Type: 
  Country: None (occurrence: None)
  Receive Date: 20080623
  Receipt Date: 20080606
  Transmission Date: 20081010
  Serious: Yes (Hospitalization)
  Sender: FDA-Public Use
  Company Number: 2008AL003925

PATIENT
  Age: 63 Year
  Sex: Female

DRUGS (10)
  1. DIGOXIN [Suspect]
     Indication: CARDIAC DISORDER
     Dosage: 0.12MG DAILY PO
     Route: 048
     Dates: start: 20050101, end: 20080501
  2. LANOXIN [Concomitant]
  3. FUROSEMIDE [Concomitant]
  4. LEVEMIR [Concomitant]
  5. KLOR-CON [Concomitant]
  6. QUALAQUIN [Concomitant]
  7. ZOCOR [Concomitant]
  8. ENALAPRIL MALEATE [Concomitant]
  9. NEXIUM [Concomitant]
  10. ALLOPURINOL [Concomitant]

REACTIONS (13)
  - ABDOMINAL PAIN UPPER [None]
  - BLOOD GLUCOSE INCREASED [None]
  - CARDIAC INFECTION [None]
  - CHILLS [None]
  - DYSPNOEA [None]
  - FATIGUE [None]
  - HYPERHIDROSIS [None]
  - HYPOTENSION [None]
  - LOSS OF CONSCIOUSNESS [None]
  - NAUSEA [None]
  - PHARMACEUTICAL PRODUCT COMPLAINT [None]
  - PYREXIA [None]
  - VOMITING [None]
